FAERS Safety Report 7779807-9 (Version None)
Quarter: 2011Q3

REPORT INFORMATION
  Report Type: 
  Country: None (occurrence: None)
  Receive Date: 20110927
  Receipt Date: 20101103
  Transmission Date: 20111222
  Serious: No
  Sender: FDA-Public Use
  Company Number: US-ASTRAZENECA-2010SE52175

PATIENT
  Age: 53 Year
  Sex: Female

DRUGS (1)
  1. SEROQUEL XR [Suspect]
     Indication: BIPOLAR DISORDER
     Route: 048
     Dates: start: 20100301, end: 20101030

REACTIONS (5)
  - INSOMNIA [None]
  - BURNOUT SYNDROME [None]
  - MOOD ALTERED [None]
  - TACHYPHRENIA [None]
  - DRUG DOSE OMISSION [None]
